FAERS Safety Report 10151321 (Version 1)
Quarter: 2014Q2

REPORT INFORMATION
  Report Type: Spontaneous
  Country: US (occurrence: US)
  Receive Date: 20140502
  Receipt Date: 20140502
  Transmission Date: 20141212
  Serious: No
  Sender: FDA-Public Use
  Company Number: US-ASTRAZENECA-2013SE76180

PATIENT
  Sex: Male

DRUGS (1)
  1. PRILOSEC OTC [Suspect]
     Dosage: 2 TABLET, 1 ONLY
     Route: 048
     Dates: start: 20131012, end: 20131012

REACTIONS (2)
  - Memory impairment [Not Recovered/Not Resolved]
  - Extra dose administered [Not Recovered/Not Resolved]
